FAERS Safety Report 22595662 (Version 1)
Quarter: 2023Q2

REPORT INFORMATION
  Report Type: Spontaneous
  Country: US (occurrence: None)
  Receive Date: 20230612
  Receipt Date: 20230612
  Transmission Date: 20230722
  Serious: No
  Sender: FDA-Public Use
  Company Number: None

PATIENT
  Sex: Female

DRUGS (10)
  1. IBRANCE [Suspect]
     Active Substance: PALBOCICLIB
     Dosage: 1T QD PO?
     Route: 048
     Dates: start: 20230418
  2. LEVOTHYROXINE [Concomitant]
     Active Substance: LEVOTHYROXINE
  3. TORSEMIDE [Concomitant]
     Active Substance: TORSEMIDE
  4. ELIQUIS [Concomitant]
     Active Substance: APIXABAN
  5. NEXIUM [Concomitant]
     Active Substance: ESOMEPRAZOLE MAGNESIUM
  6. AROMASIN [Concomitant]
     Active Substance: EXEMESTANE
  7. LORAZEPAM [Concomitant]
     Active Substance: LORAZEPAM
  8. METOPROLOL [Concomitant]
     Active Substance: METOPROLOL
  9. NITROGLYCERIN [Concomitant]
     Active Substance: NITROGLYCERIN
  10. MAGNILIFE [Concomitant]

REACTIONS (2)
  - Feeling abnormal [None]
  - Renal impairment [None]
